FAERS Safety Report 23230023 (Version 1)
Quarter: 2023Q4

REPORT INFORMATION
  Report Type: Spontaneous
  Country: FR (occurrence: FR)
  Receive Date: 20231127
  Receipt Date: 20231127
  Transmission Date: 20240109
  Serious: Yes (Life-Threatening)
  Sender: FDA-Public Use
  Company Number: FR-drreddys-LIT/FRA/23/0186928

PATIENT

DRUGS (5)
  1. BORTEZOMIB [Suspect]
     Active Substance: BORTEZOMIB
     Indication: Plasma cell myeloma
     Dosage: ON DAYS 1, 4, 8 AND 11 IN A 21-DAY CYCLE SCHEDULED FOR 2 TO 3 CYCLES
     Route: 058
  2. DEXAMETHASONE [Suspect]
     Active Substance: DEXAMETHASONE
     Indication: Plasma cell myeloma
     Dosage: FOLLOWED BY SCHEDULED WEEKLY MAINTENANCE THERAPY WITH VD REGIMEN IN A 28-DAY CYCLE
     Route: 048
  3. cotrimoxazole [trimethoprim-sulfamethoxazole] [Concomitant]
     Indication: Antibiotic therapy
  4. AMOXICILLIN [Concomitant]
     Active Substance: AMOXICILLIN
     Indication: Antibiotic therapy
  5. ACYCLOVIR [Concomitant]
     Active Substance: ACYCLOVIR
     Indication: Antibiotic therapy

REACTIONS (2)
  - Drug ineffective [Unknown]
  - Disease progression [Unknown]
